FAERS Safety Report 8262763-7 (Version None)
Quarter: 2012Q2

REPORT INFORMATION
  Report Type: 
  Country: None (occurrence: None)
  Receive Date: 20120405
  Receipt Date: 20120325
  Transmission Date: 20120825
  Serious: No
  Sender: FDA-Public Use
  Company Number: US-BAYER-2012-032702

PATIENT
  Age: 81 Year
  Sex: Female
  Weight: 77 kg

DRUGS (7)
  1. ANTIHYPERTENSIVES [Concomitant]
  2. ASCORBIC ACID [Concomitant]
  3. ADVAIR DISKUS 100/50 [Concomitant]
  4. NAPROXEN (ALEVE) [Suspect]
     Dosage: ONCE DAILY
     Route: 048
  5. VITAMIN D [Concomitant]
     Indication: ARTHRITIS
  6. NAPROXEN (ALEVE) [Suspect]
     Dosage: ONCE DAILY
     Dates: start: 20100101
  7. URINARY INCONTINENCE MEDICATION [Concomitant]

REACTIONS (1)
  - NO ADVERSE EVENT [None]
